FAERS Safety Report 7777187-6 (Version None)
Quarter: 2011Q3

REPORT INFORMATION
  Report Type: 
  Country: None (occurrence: None)
  Receive Date: 20110926
  Receipt Date: 20110919
  Transmission Date: 20111222
  Serious: Yes (Other)
  Sender: FDA-Public Use
  Company Number: US-JNJFOC-20100707913

PATIENT
  Sex: Female
  Weight: 51.26 kg

DRUGS (67)
  1. DURAGESIC-100 [Suspect]
     Route: 062
     Dates: start: 20100707
  2. DURAGESIC-100 [Suspect]
     Route: 062
     Dates: start: 20100803
  3. DURAGESIC-100 [Suspect]
     Route: 062
     Dates: start: 20100610
  4. FENTANYL-100 [Suspect]
     Route: 062
     Dates: start: 20100504
  5. FENTANYL-100 [Suspect]
     Route: 062
     Dates: start: 20100602
  6. DURAGESIC-100 [Suspect]
     Route: 062
     Dates: end: 20090101
  7. DIAZEPAM [Concomitant]
     Dosage: 28 DAYS
     Route: 065
     Dates: start: 20100707
  8. DIAZEPAM [Concomitant]
     Dosage: 28 DAYS
     Route: 065
     Dates: start: 20100610
  9. DIAZEPAM [Concomitant]
     Dosage: 28 DAYS
     Route: 065
     Dates: start: 20100803
  10. DURAGESIC-100 [Suspect]
     Route: 062
     Dates: start: 20100831
  11. DURAGESIC-100 [Suspect]
     Route: 062
     Dates: start: 20100707
  12. DURAGESIC-100 [Suspect]
     Indication: BACK PAIN
     Route: 062
     Dates: start: 20100707
  13. DURAGESIC-100 [Suspect]
     Route: 062
     Dates: start: 20100831
  14. TEMAZEPAM [Concomitant]
     Route: 065
     Dates: start: 20100707
  15. TEMAZEPAM [Concomitant]
     Route: 065
     Dates: start: 20100610
  16. TEMAZEPAM [Concomitant]
     Route: 065
     Dates: start: 20100709
  17. DIAZEPAM [Concomitant]
     Dosage: 28 DAYS
     Route: 065
     Dates: start: 20100504
  18. UNKNOWN MEDICATION [Concomitant]
     Indication: PRODUCT USED FOR UNKNOWN INDICATION
     Route: 065
  19. DURAGESIC-100 [Suspect]
     Dosage: 50UG/HR+100UG/HR
     Route: 062
     Dates: start: 20100101
  20. DURAGESIC-100 [Suspect]
     Route: 062
     Dates: start: 20090101, end: 20100101
  21. DURAGESIC-100 [Suspect]
     Dosage: 50UG/HR+100UG/HR
     Route: 062
     Dates: start: 20100101
  22. FENTANYL-100 [Suspect]
     Indication: BACK PAIN
     Route: 062
     Dates: start: 20100504
  23. FENTANYL-100 [Suspect]
     Route: 062
     Dates: start: 20100602
  24. FENTANYL-100 [Suspect]
     Indication: PAIN
     Route: 062
     Dates: start: 20010101, end: 20010101
  25. DURAGESIC-100 [Suspect]
     Route: 062
     Dates: start: 20100831
  26. DURAGESIC-100 [Suspect]
     Route: 062
     Dates: start: 20100610
  27. DURAGESIC-100 [Suspect]
     Route: 062
     Dates: start: 20100831
  28. FENTANYL-100 [Suspect]
     Route: 062
     Dates: start: 20100602
  29. DURAGESIC-100 [Suspect]
     Route: 062
     Dates: end: 20090101
  30. DURAGESIC-100 [Suspect]
     Indication: PAIN IN EXTREMITY
     Route: 062
     Dates: start: 20090101, end: 20100101
  31. DURAGESIC-100 [Suspect]
     Dosage: 50UG/HR+100UG/HR
     Route: 062
     Dates: start: 20100101
  32. DURAGESIC-100 [Suspect]
     Route: 062
     Dates: start: 20100707
  33. FENTANYL-100 [Suspect]
     Route: 062
  34. TEMAZEPAM [Concomitant]
     Route: 065
     Dates: start: 20100803
  35. DIAZEPAM [Concomitant]
     Dosage: 28 DAYS
     Route: 065
     Dates: start: 20100602
  36. DURAGESIC-100 [Suspect]
     Indication: ARTHRALGIA
     Route: 062
     Dates: start: 20100610
  37. DURAGESIC-100 [Suspect]
     Route: 062
     Dates: start: 20100803
  38. DURAGESIC-100 [Suspect]
     Route: 062
     Dates: start: 20100101
  39. DURAGESIC-100 [Suspect]
     Route: 062
     Dates: start: 20090101, end: 20100101
  40. DURAGESIC-100 [Suspect]
     Route: 062
     Dates: start: 20100610
  41. DURAGESIC-100 [Suspect]
     Route: 062
     Dates: start: 20090101, end: 20100101
  42. DURAGESIC-100 [Suspect]
     Dosage: 50UG/HR+100UG/HR
     Route: 062
     Dates: start: 20100101
  43. DURAGESIC-100 [Suspect]
     Route: 062
     Dates: start: 20100101
  44. FENTANYL-100 [Suspect]
     Route: 062
     Dates: start: 20100101, end: 20100101
  45. FENTANYL-100 [Suspect]
     Route: 062
     Dates: start: 20100504
  46. TEMAZEPAM [Concomitant]
     Dosage: AT BEDTIME
     Route: 065
     Dates: start: 20100831
  47. DURAGESIC-100 [Suspect]
     Route: 062
     Dates: start: 20100101
  48. DURAGESIC-100 [Suspect]
     Dosage: 50UG/HR+100UG/HR
     Route: 062
     Dates: start: 20100101
  49. DURAGESIC-100 [Suspect]
     Route: 062
     Dates: start: 20100803
  50. DURAGESIC-100 [Suspect]
     Route: 062
     Dates: start: 20100101
  51. DURAGESIC-100 [Suspect]
     Route: 062
     Dates: start: 20100610
  52. DURAGESIC-100 [Suspect]
     Indication: CARPAL TUNNEL SYNDROME
     Route: 062
     Dates: start: 20100101
  53. DURAGESIC-100 [Suspect]
     Route: 062
     Dates: start: 20100803
  54. FENTANYL-100 [Suspect]
     Indication: PAIN IN EXTREMITY
     Route: 062
  55. FENTANYL-100 [Suspect]
     Route: 062
     Dates: start: 20100101, end: 20100101
  56. FENTANYL-100 [Suspect]
     Indication: PAIN
     Route: 062
     Dates: start: 20100101, end: 20100101
  57. FENTANYL-100 [Suspect]
     Route: 062
  58. NEURONTIN [Concomitant]
     Indication: ARTHRALGIA
     Route: 048
     Dates: start: 19990101
  59. TEMAZEPAM [Concomitant]
     Route: 065
     Dates: start: 20100602
  60. TEMAZEPAM [Concomitant]
     Route: 065
     Dates: start: 20100504
  61. DIAZEPAM [Concomitant]
     Dosage: 28 DAYS
     Route: 065
     Dates: start: 20100831
  62. DIAZEPAM [Concomitant]
     Dosage: 28 DAYS
     Route: 065
     Dates: start: 20100831
  63. DURAGESIC-100 [Suspect]
     Route: 062
     Dates: start: 20100803
  64. DURAGESIC-100 [Suspect]
     Route: 062
     Dates: start: 20100707
  65. DURAGESIC-100 [Suspect]
     Indication: PAIN
     Route: 062
     Dates: start: 20090101, end: 20100101
  66. DURAGESIC-100 [Suspect]
     Route: 062
     Dates: start: 20100831
  67. NEXIUM [Concomitant]
     Indication: GASTROOESOPHAGEAL REFLUX DISEASE
     Route: 048
     Dates: start: 20010101

REACTIONS (16)
  - MALAISE [None]
  - HYPERSENSITIVITY [None]
  - PAIN [None]
  - THERAPEUTIC PROCEDURE [None]
  - FEELING JITTERY [None]
  - KYPHOSCOLIOSIS [None]
  - MYALGIA [None]
  - DRUG INEFFECTIVE [None]
  - COLONOSCOPY [None]
  - SUTURE INSERTION [None]
  - IRRITABILITY [None]
  - OSTEOARTHRITIS [None]
  - SPLINTER [None]
  - RESTLESSNESS [None]
  - BACK PAIN [None]
  - ARTHROSCOPY [None]
